FAERS Safety Report 6100410-0 (Version None)
Quarter: 2009Q1

REPORT INFORMATION
  Report Type: 
  Country: None (occurrence: None)
  Receive Date: 20090226
  Receipt Date: 20090217
  Transmission Date: 20090719
  Serious: Yes (Death, Life-Threatening, Disabling)
  Sender: FDA-Public Use
  Company Number: 117436333

PATIENT
  Sex: Male

DRUGS (2)
  1. WARFARIN SODIUM [Suspect]
     Dosage: 5-6 MG DAILY, ORAL
     Route: 048
  2. DILTIAZEM [Suspect]
     Dosage: 60 MG, ONCE, ORAL
     Route: 048

REACTIONS (5)
  - CEREBRAL ARTERY THROMBOSIS [None]
  - DRUG ADMINISTRATION ERROR [None]
  - DRUG DISPENSING ERROR [None]
  - DRUG INTERACTION [None]
  - SUBDURAL HAEMATOMA [None]
